FAERS Safety Report 7573404-6 (Version None)
Quarter: 2011Q2

REPORT INFORMATION
  Report Type: 
  Country: None (occurrence: None)
  Receive Date: 20110627
  Receipt Date: 20110401
  Transmission Date: 20111010
  Serious: No
  Sender: FDA-Public Use
  Company Number: A0921098A

PATIENT
  Age: 60 Year
  Sex: Female

DRUGS (4)
  1. FOSAMAX [Concomitant]
  2. CALCIUM CARBONATE [Concomitant]
  3. LAMICTAL [Suspect]
     Indication: TRIGEMINAL NEURALGIA
     Dosage: 50MG PER DAY
     Route: 048
     Dates: start: 20110325
  4. MULTI-VITAMIN [Concomitant]

REACTIONS (2)
  - BLOOD PRESSURE INCREASED [None]
  - HEART RATE INCREASED [None]
